FAERS Safety Report 8906456 (Version 4)
Quarter: 2015Q2

REPORT INFORMATION
  Report Type: Spontaneous
  Country: US (occurrence: None)
  Receive Date: 20121108
  Receipt Date: 20150507
  Transmission Date: 20150821
  Serious: Yes (Hospitalization)
  Sender: FDA-Public Use
  Company Number: 2012MPI00486

PATIENT
  Age: 66 Year
  Sex: Male
  Weight: 70 kg

DRUGS (13)
  1. SYNTHROID [Concomitant]
     Active Substance: LEVOTHYROXINE SODIUM
  2. ZOFRAN (ONDANSETRON HYDROCHLORIDE) [Concomitant]
  3. TENORMIN (ATENOLOL) [Concomitant]
  4. COLACE [Concomitant]
     Active Substance: DOCUSATE SODIUM
  5. PRAVACHOL [Concomitant]
     Active Substance: PRAVASTATIN SODIUM
  6. WELLBUTRIN [Concomitant]
     Active Substance: BUPROPION HYDROCHLORIDE
  7. VISTARIL (HYDROXYZINE EMBONATE) [Concomitant]
  8. RESTORIL (TEMAZEPAM) [Concomitant]
  9. BRENTUXIMAB VEDOTIN [Suspect]
     Active Substance: BRENTUXIMAB VEDOTIN
     Indication: MYCOSIS FUNGOIDES
     Dosage: 1.8 MG/M2, Q21D, INTRAVENOUS
     Route: 042
     Dates: start: 20121015, end: 20121015
  10. TRAZODONE [Concomitant]
     Active Substance: TRAZODONE HYDROCHLORIDE
  11. FENOFIBRATE (FENOFIBRATE) [Concomitant]
  12. ASPIRIN (ACETYLSALICYLIC ACID) [Concomitant]
     Active Substance: ASPIRIN
  13. ZETIA [Concomitant]
     Active Substance: EZETIMIBE

REACTIONS (5)
  - Haematochezia [None]
  - Constipation [None]
  - Diverticulitis [None]
  - Blood pressure decreased [None]
  - Haemorrhoidal haemorrhage [None]

NARRATIVE: CASE EVENT DATE: 20121023
